FAERS Safety Report 7832877-1 (Version None)
Quarter: 2011Q4

REPORT INFORMATION
  Report Type: 
  Country: None (occurrence: None)
  Receive Date: 20111024
  Receipt Date: 20111017
  Transmission Date: 20120403
  Serious: Yes (Death)
  Sender: FDA-Public Use
  Company Number: JP-BRISTOL-MYERS SQUIBB COMPANY-15542244

PATIENT
  Age: 61 Year
  Sex: Male
  Weight: 44 kg

DRUGS (11)
  1. PREDNISOLONE [Suspect]
     Dosage: INITIAL DOSE:13MG/D STOP ON 09DEC10,DOSE INCREASED TO 15MG/D ON 06JAN11 ONGOING
     Route: 048
  2. FAMOTIDINE [Concomitant]
     Indication: GASTRITIS PROPHYLAXIS
  3. FERROUS CITRATE [Concomitant]
     Indication: IRON DEFICIENCY ANAEMIA
     Dosage: FEROTYM
  4. ORENCIA [Suspect]
     Indication: RHEUMATOID ARTHRITIS
     Dosage: THERAPY DATES:06JAN11
     Route: 041
     Dates: start: 20101215
  5. ADALIMUMAB [Concomitant]
     Dates: start: 20091119, end: 20100610
  6. DICLOFENAC SODIUM [Concomitant]
     Indication: RHEUMATOID ARTHRITIS
     Dosage: SORELMON SR
  7. ALENDRONATE SODIUM [Concomitant]
     Indication: OSTEOPOROSIS
  8. MINOCYCLINE HCL [Concomitant]
  9. METHOTREXATE [Suspect]
     Dosage: INITIAL DOSE:8MG/WK STOP ON 09DEC10.,DOSE INCREASED TO 16MG/WK ON 06JAN11 DISCONTINUED
     Route: 048
     Dates: start: 20101223, end: 20110106
  10. FOLIC ACID [Concomitant]
     Indication: FOLATE DEFICIENCY
  11. ISONIAZID [Concomitant]

REACTIONS (1)
  - PNEUMOCYSTIS JIROVECI PNEUMONIA [None]
